FAERS Safety Report 13150276 (Version 1)
Quarter: 2017Q1

REPORT INFORMATION
  Report Type: Report from Study
  Country: JP (occurrence: JP)
  Receive Date: 20170125
  Receipt Date: 20170125
  Transmission Date: 20170428
  Serious: Yes (Hospitalization, Other)
  Sender: FDA-Public Use
  Company Number: JP-ELI_LILLY_AND_COMPANY-JP201701005168

PATIENT
  Age: 70 Year
  Sex: Female
  Weight: 52 kg

DRUGS (19)
  1. PRASUGREL HYDROCHLORIDE [Suspect]
     Active Substance: PRASUGREL HYDROCHLORIDE
     Dosage: 3.75 MG, QD
     Route: 048
     Dates: start: 20150818, end: 20150830
  2. PRASUGREL HYDROCHLORIDE [Suspect]
     Active Substance: PRASUGREL HYDROCHLORIDE
     Dosage: 3.75 MG, QD
     Route: 048
     Dates: start: 20150910
  3. LANSOPRAZOLE. [Concomitant]
     Active Substance: LANSOPRAZOLE
     Dosage: UNK
     Route: 048
     Dates: start: 20150817, end: 20150908
  4. ATORVASTATIN                       /01326102/ [Concomitant]
     Active Substance: ATORVASTATIN
     Dosage: UNK
     Route: 048
     Dates: start: 20150817, end: 20150908
  5. NIKORANMART [Concomitant]
     Active Substance: NICORANDIL
     Dosage: UNK
     Route: 048
     Dates: start: 20150818, end: 20150909
  6. CARVEDILOL. [Concomitant]
     Active Substance: CARVEDILOL
     Dosage: UNK
     Route: 048
     Dates: start: 20150818, end: 20150913
  7. ETIZOLAM [Concomitant]
     Active Substance: ETIZOLAM
     Dosage: UNK
     Route: 048
  8. LASIX [Concomitant]
     Active Substance: FUROSEMIDE
     Dosage: UNK
     Route: 048
     Dates: start: 20150910
  9. ASPIRIN                            /00002701/ [Concomitant]
     Active Substance: ASPIRIN
     Dosage: 200 MG, QD
     Route: 048
     Dates: start: 20150817, end: 20150817
  10. NOVO HEPARIN [Concomitant]
     Active Substance: HEPARIN SODIUM
     Dosage: 10000 IU, QD
     Route: 042
     Dates: start: 20150817, end: 20150818
  11. LANSOPRAZOLE. [Concomitant]
     Active Substance: LANSOPRAZOLE
     Dosage: UNK
     Route: 048
     Dates: start: 20150910
  12. ATORVASTATIN                       /01326102/ [Concomitant]
     Active Substance: ATORVASTATIN
     Dosage: UNK
     Route: 048
     Dates: start: 20150910
  13. PRASUGREL HYDROCHLORIDE [Suspect]
     Active Substance: PRASUGREL HYDROCHLORIDE
     Indication: ANGINA UNSTABLE
     Dosage: 20 MG, QD
     Route: 048
     Dates: start: 20150817, end: 20150817
  14. ASPIRIN                            /00002701/ [Concomitant]
     Active Substance: ASPIRIN
     Dosage: 100 MG, QD
     Route: 048
     Dates: start: 20150818, end: 20150908
  15. ASPIRIN                            /00002701/ [Concomitant]
     Active Substance: ASPIRIN
     Dosage: 200 MG, QD
     Route: 048
     Dates: start: 20150910
  16. WARFARIN                           /00014803/ [Concomitant]
     Active Substance: WARFARIN
     Dosage: 2 MG, QD
     Route: 048
     Dates: start: 20150910
  17. SPIRONOLACTONE. [Concomitant]
     Active Substance: SPIRONOLACTONE
     Dosage: UNK
     Route: 048
     Dates: start: 20150910
  18. NOVO HEPARIN [Concomitant]
     Active Substance: HEPARIN SODIUM
     Dosage: 10000 IU, QD
     Route: 042
     Dates: start: 20150904, end: 201509
  19. ELIQUIS [Concomitant]
     Active Substance: APIXABAN
     Dosage: 10 MG, QD
     Route: 048
     Dates: start: 20150831, end: 20150904

REACTIONS (3)
  - Haemorrhage [Unknown]
  - Haemoglobin decreased [Recovered/Resolved]
  - Circulatory collapse [Recovering/Resolving]

NARRATIVE: CASE EVENT DATE: 201509
